FAERS Safety Report 16085494 (Version 1)
Quarter: 2019Q1

REPORT INFORMATION
  Report Type: Spontaneous
  Country: AU (occurrence: AU)
  Receive Date: 20190318
  Receipt Date: 20190318
  Transmission Date: 20190418
  Serious: Yes (Hospitalization)
  Sender: FDA-Public Use
  Company Number: AU-OTSUKA-2019_007385

PATIENT
  Age: 21 Year
  Sex: Female

DRUGS (6)
  1. DIAZEPAM. [Interacting]
     Active Substance: DIAZEPAM
     Indication: PRODUCT USED FOR UNKNOWN INDICATION
     Dosage: AS REQUIRED
     Route: 065
  2. QUETIAPINE. [Interacting]
     Active Substance: QUETIAPINE
     Indication: PRODUCT USED FOR UNKNOWN INDICATION
     Dosage: 50 MG, QD
     Route: 065
  3. REXULTI [Suspect]
     Active Substance: BREXPIPRAZOLE
     Indication: POST-TRAUMATIC STRESS DISORDER
     Dosage: 1 MG, QD
     Route: 048
     Dates: start: 20180828
  4. REXULTI [Interacting]
     Active Substance: BREXPIPRAZOLE
     Indication: BORDERLINE PERSONALITY DISORDER
     Dosage: 2 MG, QD
     Route: 048
     Dates: end: 20180926
  5. REXULTI [Interacting]
     Active Substance: BREXPIPRAZOLE
     Indication: DEPRESSION
  6. DESVENLAFAXINE. [Interacting]
     Active Substance: DESVENLAFAXINE
     Indication: PRODUCT USED FOR UNKNOWN INDICATION
     Dosage: 100 MG, QD
     Route: 065

REACTIONS (3)
  - Drug interaction [Unknown]
  - Dyslexia [Recovered/Resolved]
  - Suicidal ideation [Recovering/Resolving]

NARRATIVE: CASE EVENT DATE: 20180910
